FAERS Safety Report 4396727-0 (Version None)
Quarter: 2004Q3

REPORT INFORMATION
  Report Type: 
  Country: None (occurrence: None)
  Receive Date: 20040713
  Receipt Date: 20040713
  Transmission Date: 20050211
  Serious: Yes (Hospitalization)
  Sender: FDA-Public Use
  Company Number: None

PATIENT
  Age: 66 Year
  Sex: Male
  Weight: 108.9 kg

DRUGS (2)
  1. METOPROLOL [Suspect]
     Dosage: 25MG QD, 25MG QD ORAL
     Route: 048
     Dates: start: 20040525, end: 20040527
  2. PROPOFOL [Concomitant]

REACTIONS (2)
  - BRADYCARDIA [None]
  - HYPOTENSION [None]
